FAERS Safety Report 20041811 (Version 1)
Quarter: 2021Q4

REPORT INFORMATION
  Report Type: Spontaneous
  Country: SE (occurrence: SE)
  Receive Date: 20211108
  Receipt Date: 20211108
  Transmission Date: 20220303
  Serious: Yes (Hospitalization)
  Sender: FDA-Public Use
  Company Number: SE-MPA-2021-089740

PATIENT
  Age: 80 Year
  Sex: Male

DRUGS (10)
  1. ATORVASTATIN [Suspect]
     Active Substance: ATORVASTATIN
     Indication: Product used for unknown indication
     Dosage: 1X1, TABLET
     Route: 065
     Dates: end: 20210523
  2. ASPIRIN [Concomitant]
     Active Substance: ASPIRIN
     Indication: Product used for unknown indication
     Dosage: UNK, 75 MG 1X1
     Route: 065
  3. Folacin [Concomitant]
     Indication: Product used for unknown indication
     Dosage: UNK, 1X1
     Route: 065
  4. RAMIPRIL [Concomitant]
     Active Substance: RAMIPRIL
     Indication: Product used for unknown indication
     Dosage: UNK, 5MG. 0,5X2
     Route: 065
  5. CYANOCOBALAMIN [Concomitant]
     Active Substance: CYANOCOBALAMIN
     Indication: Product used for unknown indication
     Dosage: UNK, 1X1
     Route: 065
  6. LAXIDO APELSIN [Concomitant]
     Indication: Product used for unknown indication
     Dosage: UNK, 1X1
     Route: 065
  7. PRADAXA [Concomitant]
     Active Substance: DABIGATRAN ETEXILATE MESYLATE
     Indication: Product used for unknown indication
     Dosage: UNK, 1X2
     Route: 065
  8. BISOPROLOL [Concomitant]
     Active Substance: BISOPROLOL
     Indication: Product used for unknown indication
     Dosage: UNK, 5MG. 0,5X1
     Route: 065
  9. Furix [Concomitant]
     Indication: Product used for unknown indication
     Dosage: UNK, VB
     Route: 065
  10. OMEPRAZOLE [Concomitant]
     Active Substance: OMEPRAZOLE
     Indication: Product used for unknown indication
     Dosage: 1X1
     Route: 065

REACTIONS (3)
  - Hypokalaemia [Recovered/Resolved]
  - Acute kidney injury [Recovered/Resolved]
  - Muscular weakness [Recovered/Resolved]

NARRATIVE: CASE EVENT DATE: 20210523
